FAERS Safety Report 19305843 (Version 1)
Quarter: 2021Q2

REPORT INFORMATION
  Report Type: Spontaneous
  Country: IT (occurrence: IT)
  Receive Date: 20210525
  Receipt Date: 20210525
  Transmission Date: 20210717
  Serious: Yes (Other)
  Sender: FDA-Public Use
  Company Number: NVSC2021IT110722

PATIENT
  Age: 51 Year
  Sex: Female

DRUGS (2)
  1. LETROZOLE. [Concomitant]
     Active Substance: LETROZOLE
     Indication: BREAST CANCER STAGE IV
     Dosage: 2.5 MG
     Route: 048
     Dates: start: 20181205
  2. KISQALI [Suspect]
     Active Substance: RIBOCICLIB
     Indication: BREAST CANCER STAGE IV
     Dosage: 600 MG, QD
     Route: 048
     Dates: start: 20181205, end: 20210413

REACTIONS (3)
  - Pruritus [Unknown]
  - Neutropenia [Unknown]
  - Urticaria [Unknown]

NARRATIVE: CASE EVENT DATE: 20210413
